FAERS Safety Report 7775286-6 (Version None)
Quarter: 2011Q3

REPORT INFORMATION
  Report Type: 
  Country: None (occurrence: None)
  Receive Date: 20110923
  Receipt Date: 20110920
  Transmission Date: 20111222
  Serious: Yes (Death)
  Sender: FDA-Public Use
  Company Number: PL-CEPHALON-2009010753

PATIENT
  Sex: Male
  Weight: 63 kg

DRUGS (7)
  1. FENTANYL CITRATE [Suspect]
     Indication: CANCER PAIN
     Route: 002
     Dates: start: 20090921, end: 20090926
  2. NYSTATYNA [Concomitant]
     Indication: CANDIDIASIS
     Route: 048
     Dates: start: 20090903
  3. T/S FENTANYL [Suspect]
     Indication: CANCER PAIN
     Route: 062
  4. T/S FENTANYL [Suspect]
  5. MEGASTROL ACETATE [Concomitant]
     Indication: CACHEXIA
     Route: 048
     Dates: start: 20090811
  6. OMEPRAZOLE [Concomitant]
     Indication: PROPHYLAXIS
     Route: 048
     Dates: start: 20090811
  7. HEPAREGEN [Concomitant]
     Indication: HEPATIC FAILURE
     Route: 048
     Dates: start: 20090811

REACTIONS (2)
  - HYPOVOLAEMIA [None]
  - RECTAL CANCER METASTATIC [None]
